FAERS Safety Report 16440116 (Version 2)
Quarter: 2019Q3

REPORT INFORMATION
  Report Type: Spontaneous
  Country: JP (occurrence: JP)
  Receive Date: 20190617
  Receipt Date: 20190708
  Transmission Date: 20191004
  Serious: Yes (Hospitalization, Other)
  Sender: FDA-Public Use
  Company Number: JP-GILEAD-2019-0412999

PATIENT
  Age: 8 Decade
  Sex: Female

DRUGS (9)
  1. HEPAACT [Concomitant]
  2. EPCLUSA [Suspect]
     Active Substance: SOFOSBUVIR\VELPATASVIR
     Indication: HEPATITIS C VIRUS TEST POSITIVE
     Dosage: 1 DOSAGE FORM
     Route: 048
     Dates: start: 20190612
  3. PORTOLAC [Concomitant]
     Active Substance: LACTITOL
  4. SPIRONOLACTONE. [Concomitant]
     Active Substance: SPIRONOLACTONE
     Indication: POLYURIA
  5. NEXIUM [Concomitant]
     Active Substance: ESOMEPRAZOLE MAGNESIUM
  6. LEVOCARNITINE. [Concomitant]
     Active Substance: LEVOCARNITINE
  7. LASIX [Concomitant]
     Active Substance: FUROSEMIDE
     Indication: POLYURIA
  8. RIFAXIMIN. [Concomitant]
     Active Substance: RIFAXIMIN
  9. EPCLUSA [Suspect]
     Active Substance: SOFOSBUVIR\VELPATASVIR
     Indication: HEPATIC CIRRHOSIS
     Dosage: 1 DOSAGE FORM
     Route: 048
     Dates: start: 20190605, end: 20190609

REACTIONS (1)
  - Hepatic encephalopathy [Recovered/Resolved]

NARRATIVE: CASE EVENT DATE: 20190610
